FAERS Safety Report 19592556 (Version 1)
Quarter: 2021Q3

REPORT INFORMATION
  Report Type: Spontaneous
  Country: US (occurrence: US)
  Receive Date: 20210721
  Receipt Date: 20210721
  Transmission Date: 20211014
  Serious: Yes (Death)
  Sender: FDA-Public Use
  Company Number: None

PATIENT
  Age: 93 Year
  Sex: Male

DRUGS (12)
  1. LATANOPROST. [Concomitant]
     Active Substance: LATANOPROST
  2. AZOPT [Concomitant]
     Active Substance: BRINZOLAMIDE
  3. CLOPIDOGREL [Concomitant]
     Active Substance: CLOPIDOGREL BISULFATE
  4. BRINZOLAMIDE [Concomitant]
     Active Substance: BRINZOLAMIDE
  5. PROBENECID. [Concomitant]
     Active Substance: PROBENECID
  6. TORSEMIDE. [Concomitant]
     Active Substance: TORSEMIDE
  7. METOPROLOL. [Concomitant]
     Active Substance: METOPROLOL
  8. POT CHLORIDE [Concomitant]
     Active Substance: POTASSIUM CHLORIDE
  9. GABAPENTIN. [Concomitant]
     Active Substance: GABAPENTIN
  10. ISOSORB [Concomitant]
  11. BICALUTAMIDE 50MG [Suspect]
     Active Substance: BICALUTAMIDE
     Indication: PROSTATE CANCER
     Route: 048
     Dates: start: 20210128
  12. LISIISNOPRIL [Concomitant]

REACTIONS (1)
  - Death [None]
